FAERS Safety Report 15052181 (Version 1)
Quarter: 2018Q2

REPORT INFORMATION
  Report Type: Spontaneous
  Country: US (occurrence: US)
  Receive Date: 20180622
  Receipt Date: 20180622
  Transmission Date: 20180711
  Serious: No
  Sender: FDA-Public Use
  Company Number: US-DENDREON PHARMACEUTICALS LLC-2017DEN000035

PATIENT

DRUGS (5)
  1. PROVENGE [Suspect]
     Active Substance: SIPULEUCEL-T
     Dosage: UNK
     Dates: start: 20171204, end: 20171204
  2. TAMSULOSIN [Concomitant]
     Active Substance: TAMSULOSIN
     Dosage: UNK
  3. PROVENGE [Suspect]
     Active Substance: SIPULEUCEL-T
     Indication: PROSTATE CANCER
     Dosage: UNK
     Dates: start: 20171113, end: 20171113
  4. MEGESTEROL [Concomitant]
     Dosage: UNK
  5. PROVENGE [Suspect]
     Active Substance: SIPULEUCEL-T
     Dosage: UNK
     Dates: start: 20171218, end: 20171218

REACTIONS (3)
  - Nasal congestion [Recovering/Resolving]
  - Oropharyngeal pain [Recovering/Resolving]
  - Cough [Recovering/Resolving]

NARRATIVE: CASE EVENT DATE: 20171218
